FAERS Safety Report 11991321 (Version 1)
Quarter: 2016Q1

REPORT INFORMATION
  Report Type: Spontaneous
  Country: US (occurrence: None)
  Receive Date: 20160202
  Receipt Date: 20160202
  Transmission Date: 20160526
  Serious: No
  Sender: FDA-Public Use
  Company Number: None

PATIENT
  Age: 41 Year
  Sex: Female
  Weight: 67.59 kg

DRUGS (7)
  1. THYROXINE [Concomitant]
     Active Substance: LEVOTHYROXINE
  2. LAMOTRIGINE. [Concomitant]
     Active Substance: LAMOTRIGINE
  3. LORATADINE. [Concomitant]
     Active Substance: LORATADINE
  4. COLGATE TOTAL LASTING WHITE POLAR FRESHMINT [Suspect]
     Active Substance: SODIUM FLUORIDE
     Indication: DENTAL CARE
     Dosage: DATE OF USE ONCE
  5. ESCITALOPRAM [Concomitant]
     Active Substance: ESCITALOPRAM OXALATE
  6. CARBONATE [Concomitant]
  7. BUPROPION. [Concomitant]
     Active Substance: BUPROPION

REACTIONS (8)
  - Pain in jaw [None]
  - Lip swelling [None]
  - Oral discomfort [None]
  - Hypogeusia [None]
  - Glossodynia [None]
  - Oral pain [None]
  - Local swelling [None]
  - Lip exfoliation [None]

NARRATIVE: CASE EVENT DATE: 20160127
